FAERS Safety Report 5026079-4 (Version None)
Quarter: 2006Q2

REPORT INFORMATION
  Report Type: 
  Country: None (occurrence: None)
  Receive Date: 20060612
  Receipt Date: 20060612
  Transmission Date: 20061013
  Serious: No
  Sender: FDA-Public Use
  Company Number: None

PATIENT
  Age: 36 Year
  Sex: Male
  Weight: 158.759 kg

DRUGS (1)
  1. ZYVOX [Suspect]
     Indication: CELLULITIS STAPHYLOCOCCAL
     Dosage: 600 MG BID PO
     Route: 048
     Dates: start: 20060605, end: 20060607

REACTIONS (5)
  - HYPERSENSITIVITY [None]
  - LEUKOCYTOSIS [None]
  - PYREXIA [None]
  - RASH [None]
  - URTICARIA [None]
